FAERS Safety Report 25531121 (Version 1)
Quarter: 2025Q3

REPORT INFORMATION
  Report Type: Spontaneous
  Country: BR (occurrence: BR)
  Receive Date: 20250708
  Receipt Date: 20250708
  Transmission Date: 20251021
  Serious: Yes (Hospitalization)
  Sender: BAUSCH AND LOMB
  Company Number: BR-BAUSCH-BH-2025-014252

PATIENT
  Age: 36 Year
  Sex: Female

DRUGS (6)
  1. XIFAXAN [Suspect]
     Active Substance: RIFAXIMIN
     Indication: Gastrointestinal microorganism overgrowth
     Route: 048
     Dates: start: 20250612
  2. DOSS + ZINC [Concomitant]
     Indication: Vitamin supplementation
     Route: 048
  3. BROMOPRIDE [Concomitant]
     Active Substance: BROMOPRIDE
     Indication: Gastrointestinal microorganism overgrowth
     Route: 065
     Dates: start: 20250612
  4. CYANOCOBALAMIN\PYRIDOXINE HYDROCHLORIDE\THIAMINE [Concomitant]
     Active Substance: CYANOCOBALAMIN\PYRIDOXINE HYDROCHLORIDE\THIAMINE
     Indication: Vitamin supplementation
     Route: 065
     Dates: start: 20250613
  5. SELENE [Concomitant]
     Indication: Polycystic ovaries
     Dosage: 0.035 MG + 2 MG; 1 PILL PER DAY
     Route: 065
  6. SELENE [Concomitant]
     Indication: Acne

REACTIONS (3)
  - Leukocytosis [Unknown]
  - Product dose omission issue [Recovered/Resolved]
  - Off label use [Not Recovered/Not Resolved]

NARRATIVE: CASE EVENT DATE: 20250619
